FAERS Safety Report 9096361 (Version 1)
Quarter: 2013Q1

REPORT INFORMATION
  Report Type: Spontaneous
  Country: FR (occurrence: FR)
  Receive Date: 20130207
  Receipt Date: 20130207
  Transmission Date: 20140127
  Serious: Yes (Hospitalization)
  Sender: FDA-Public Use
  Company Number: FR-009507513-1302FRA000953

PATIENT
  Age: 57 Year
  Sex: Male

DRUGS (5)
  1. CHIBRO-PROSCAR [Suspect]
     Dosage: UNK
     Route: 048
  2. DEPAKOTE [Suspect]
     Dosage: UNK
     Route: 048
     Dates: start: 2006
  3. LEPONEX [Suspect]
     Indication: SCHIZOPHRENIA
     Dosage: UNK
     Dates: start: 20070830, end: 20070921
  4. STILNOX [Suspect]
     Indication: SCHIZOPHRENIA
     Dosage: UNK
     Dates: start: 2006
  5. PROZAC [Suspect]
     Indication: SCHIZOPHRENIA
     Dosage: UNK
     Dates: start: 2006

REACTIONS (1)
  - Vasculitis [Recovered/Resolved]
